FAERS Safety Report 5624041-1 (Version None)
Quarter: 2008Q1

REPORT INFORMATION
  Report Type: 
  Country: None (occurrence: None)
  Receive Date: 20080213
  Receipt Date: 20070821
  Transmission Date: 20080703
  Serious: No
  Sender: FDA-Public Use
  Company Number: US-KINGPHARMUSA00001-K200701078

PATIENT

DRUGS (6)
  1. EPIPEN [Suspect]
     Indication: ADVERSE DRUG REACTION
     Dosage: 0.3 MG, ONCE
     Dates: start: 20070820, end: 20070820
  2. EPIPEN [Suspect]
     Dosage: 0.3 MG, ONCE
     Route: 030
     Dates: start: 20070820, end: 20070820
  3. SINGULAIR [Concomitant]
     Route: 048
  4. INHALER [Concomitant]
  5. BYETTA [Concomitant]
  6. METFORMIN HCL [Concomitant]

REACTIONS (7)
  - ACCIDENTAL EXPOSURE [None]
  - DRUG INEFFECTIVE [None]
  - INJECTION SITE ANAESTHESIA [None]
  - INJECTION SITE BRUISING [None]
  - INJECTION SITE COLDNESS [None]
  - INJECTION SITE PAIN [None]
  - INJECTION SITE PALLOR [None]
